FAERS Safety Report 4690991-6 (Version None)
Quarter: 2005Q2

REPORT INFORMATION
  Report Type: 
  Country: None (occurrence: None)
  Receive Date: 20050614
  Receipt Date: 20050614
  Transmission Date: 20051028
  Serious: Yes (Other)
  Sender: FDA-Public Use
  Company Number: None

PATIENT
  Sex: Female
  Weight: 74 kg

DRUGS (2)
  1. VANCOMYCIN [Suspect]
     Indication: SINUS DISORDER
     Dosage: IV
     Route: 042
     Dates: start: 20050520, end: 20050613
  2. VANCOMYCIN [Suspect]
     Indication: STAPHYLOCOCCAL INFECTION
     Dosage: IV
     Route: 042
     Dates: start: 20050520, end: 20050613

REACTIONS (1)
  - RASH GENERALISED [None]
